FAERS Safety Report 23153237 (Version 1)
Quarter: 2023Q4

REPORT INFORMATION
  Report Type: Spontaneous
  Country: US (occurrence: None)
  Receive Date: 20231106
  Receipt Date: 20231106
  Transmission Date: 20240110
  Serious: No
  Sender: FDA-Public Use
  Company Number: None

PATIENT
  Sex: 0

DRUGS (1)
  1. CEQUA [Suspect]
     Active Substance: CYCLOSPORINE

REACTIONS (6)
  - Eye pain [None]
  - Thermal burns of eye [None]
  - Instillation site pain [None]
  - Instillation site burn [None]
  - Discomfort [None]
  - Therapy cessation [None]
